FAERS Safety Report 11368776 (Version 1)
Quarter: 2015Q3

REPORT INFORMATION
  Report Type: Spontaneous
  Country: US (occurrence: US)
  Receive Date: 20150812
  Receipt Date: 20150812
  Transmission Date: 20151125
  Serious: No
  Sender: FDA-Public Use
  Company Number: US-009507513-1508USA001404

PATIENT
  Age: 22 Year
  Sex: Female
  Weight: 116.1 kg

DRUGS (1)
  1. NEXPLANON [Suspect]
     Active Substance: ETONOGESTREL
     Indication: CONTRACEPTION
     Dosage: EVERY 3 YEARS,LEFT ARM IMPLANT
     Dates: start: 20130628

REACTIONS (3)
  - Nausea [Unknown]
  - Menorrhagia [Unknown]
  - Dizziness [Unknown]

NARRATIVE: CASE EVENT DATE: 201507
